FAERS Safety Report 5032701-9 (Version None)
Quarter: 2006Q2

REPORT INFORMATION
  Report Type: 
  Country: None (occurrence: None)
  Receive Date: 20060622
  Receipt Date: 20060412
  Transmission Date: 20061013
  Serious: Yes (Other)
  Sender: FDA-Public Use
  Company Number: NL-AVENTIS-200614181GDDC

PATIENT
  Age: 58 Year
  Sex: Male
  Weight: 90 kg

DRUGS (5)
  1. LANTUS [Suspect]
     Indication: DIABETES MELLITUS
     Dosage: DOSE: 20-30; DOSE UNIT: UNITS
     Route: 058
     Dates: start: 20040209
  2. LANTUS [Suspect]
     Dosage: DOSE UNIT: UNITS
  3. NOVORAPID [Concomitant]
     Indication: DIABETES MELLITUS
     Dosage: DOSE: UNK
     Route: 058
  4. LANSOPRAZOL [Concomitant]
     Indication: OESOPHAGITIS
     Route: 048
  5. LOSARTAN [Concomitant]
     Indication: HYPERTENSION
     Route: 048

REACTIONS (2)
  - FEAR [None]
  - PALPITATIONS [None]
